FAERS Safety Report 10171868 (Version 1)
Quarter: 2014Q2

REPORT INFORMATION
  Report Type: Spontaneous
  Country: US (occurrence: None)
  Receive Date: 20140512
  Receipt Date: 20140512
  Transmission Date: 20141212
  Serious: Yes (Death)
  Sender: FDA-Public Use
  Company Number: UTC-047299

PATIENT
  Age: 69 Year
  Sex: Female

DRUGS (3)
  1. REMODULIN [Suspect]
     Indication: PULMONARY ARTERIAL HYPERTENSION
     Dosage: 233.28 UG/KG (0.162 UG/KG, 1 IN 1 MIN) INTRAVENOUS DRIP
     Route: 041
     Dates: start: 20060531
  2. COUMADIN [Concomitant]
  3. REVATIO [Concomitant]

REACTIONS (1)
  - Death [None]
